FAERS Safety Report 7200649-7 (Version None)
Quarter: 2010Q4

REPORT INFORMATION
  Report Type: 
  Country: None (occurrence: None)
  Receive Date: 20101228
  Receipt Date: 20101221
  Transmission Date: 20110411
  Serious: Yes (Death)
  Sender: FDA-Public Use
  Company Number: DE-BRACCO-000772

PATIENT
  Age: 78 Year
  Sex: Female

DRUGS (2)
  1. SOLUTRAST [Suspect]
     Indication: NON-HODGKIN'S LYMPHOMA
     Dates: start: 20101220, end: 20101220
  2. SOLUTRAST [Suspect]
     Indication: COMPUTERISED TOMOGRAM
     Dates: start: 20101220, end: 20101220

REACTIONS (3)
  - ACUTE MYOCARDIAL INFARCTION [None]
  - CARDIAC FAILURE [None]
  - PULMONARY OEDEMA [None]
